FAERS Safety Report 24039758 (Version 1)
Quarter: 2024Q3

REPORT INFORMATION
  Report Type: Spontaneous
  Country: FR (occurrence: FR)
  Receive Date: 20240702
  Receipt Date: 20240702
  Transmission Date: 20241017
  Serious: Yes (Other)
  Sender: RANBAXY
  Company Number: FR-AFSSAPS-BX2024000672

PATIENT
  Age: 70 Year
  Sex: Female
  Weight: 75 kg

DRUGS (1)
  1. NOREPINEPHRINE [Suspect]
     Active Substance: NOREPINEPHRINE\NOREPINEPHRINE BITARTRATE
     Indication: Haemodynamic instability
     Dosage: INITIAL CONCENTRATION 0.02 MG/ML THEN INCREASED TO 0.16 MG/ML, IN TOTAL
     Route: 040
     Dates: start: 20231025, end: 20231025

REACTIONS (3)
  - Accidental overdose [Recovered/Resolved]
  - Wrong rate [Recovered/Resolved]
  - Hypertension [Recovered/Resolved]

NARRATIVE: CASE EVENT DATE: 20231025
